FAERS Safety Report 5101510-4 (Version None)
Quarter: 2006Q3

REPORT INFORMATION
  Report Type: 
  Country: None (occurrence: None)
  Receive Date: 20060906
  Receipt Date: 20060821
  Transmission Date: 20061208
  Serious: Yes (Hospitalization)
  Sender: FDA-Public Use
  Company Number: RB-3790-2006

PATIENT
  Age: 51 Year
  Sex: Female

DRUGS (3)
  1. SUBOXONE [Suspect]
     Indication: DRUG USE FOR UNKNOWN INDICATION
     Dosage: 3 DF EODAY SL
     Route: 060
  2. VENLAFAXIINE HCL [Concomitant]
  3. QUETIAPINE FUMARATE [Concomitant]

REACTIONS (1)
  - GRAND MAL CONVULSION [None]
